FAERS Safety Report 9179357 (Version 1)
Quarter: 2012Q4

REPORT INFORMATION
  Report Type: Report from Study
  Country: FR (occurrence: FR)
  Receive Date: 20121029
  Receipt Date: 20121029
  Transmission Date: 20130627
  Serious: Yes (Hospitalization, Other)
  Sender: FDA-Public Use
  Company Number: FR-VERTEX PHARMACEUTICAL INC.-2012-023635

PATIENT
  Age: 59 None
  Sex: Male
  Weight: 85 kg

DRUGS (7)
  1. VX-950 [Suspect]
     Indication: HEPATITIS C
     Dosage: 750 mg, tid
     Dates: start: 20120520, end: 20120729
  2. VX-950 [Suspect]
     Dosage: 750 mg, tid
     Dates: start: 20120804, end: 20120812
  3. PEGASYS [Suspect]
     Indication: HEPATITIS C
     Dosage: Dosage Form: Injection
     Route: 058
     Dates: start: 20110520
  4. COPEGUS [Suspect]
     Indication: HEPATITIS C
     Dosage: Dosage Form: Tablets
     Route: 048
     Dates: start: 20110520
  5. AVLOCARDYL [Concomitant]
     Indication: PORTAL HYPERTENSION
     Dosage: 160 mg, qd
     Dates: start: 2010
  6. PAROXETINE [Concomitant]
     Indication: ANXIETY
  7. NEORECORMON [Concomitant]
     Indication: ANAEMIA
     Dosage: 30000 IU, UNK
     Dates: start: 20110620

REACTIONS (4)
  - Psychiatric decompensation [Recovered/Resolved]
  - Anaemia [Recovered/Resolved]
  - Thrombocytopenia [Recovered/Resolved]
  - Inappropriate schedule of drug administration [Unknown]
